FAERS Safety Report 20638272 (Version 4)
Quarter: 2023Q1

REPORT INFORMATION
  Report Type: Report from Study
  Country: JP (occurrence: JP)
  Receive Date: 20220325
  Receipt Date: 20230309
  Transmission Date: 20230417
  Serious: Yes (Death, Hospitalization, Other)
  Sender: FDA-Public Use
  Company Number: JP-BRISTOL-MYERS SQUIBB COMPANY-BMS-2021-136120

PATIENT
  Age: 60 Year
  Sex: Male
  Weight: 44 kg

DRUGS (49)
  1. YERVOY [Suspect]
     Active Substance: IPILIMUMAB
     Indication: Non-small cell lung cancer recurrent
     Route: 041
     Dates: start: 20210802, end: 20210802
  2. YERVOY [Suspect]
     Active Substance: IPILIMUMAB
     Route: 041
     Dates: start: 20210913, end: 20210913
  3. YERVOY [Suspect]
     Active Substance: IPILIMUMAB
     Route: 041
     Dates: start: 20210621, end: 20210621
  4. OPDIVO [Suspect]
     Active Substance: NIVOLUMAB
     Indication: Non-small cell lung cancer recurrent
     Route: 041
     Dates: start: 20210712, end: 20210712
  5. OPDIVO [Suspect]
     Active Substance: NIVOLUMAB
     Route: 041
     Dates: start: 20210802, end: 20210802
  6. OPDIVO [Suspect]
     Active Substance: NIVOLUMAB
     Route: 041
     Dates: start: 20210823, end: 20210823
  7. OPDIVO [Suspect]
     Active Substance: NIVOLUMAB
     Route: 041
     Dates: start: 20210913, end: 20210913
  8. OPDIVO [Suspect]
     Active Substance: NIVOLUMAB
     Route: 041
     Dates: start: 20211004, end: 20211004
  9. OPDIVO [Suspect]
     Active Substance: NIVOLUMAB
     Route: 041
     Dates: start: 20210621, end: 20210621
  10. CARBOPLATIN [Suspect]
     Active Substance: CARBOPLATIN
     Indication: Non-small cell lung cancer recurrent
     Dates: start: 20210621, end: 20210621
  11. CARBOPLATIN [Suspect]
     Active Substance: CARBOPLATIN
     Dates: start: 20210712, end: 20210712
  12. CARBOPLATIN [Suspect]
     Active Substance: CARBOPLATIN
     Dates: start: 20211129, end: 20220202
  13. PACLITAXEL [Suspect]
     Active Substance: PACLITAXEL
     Indication: Non-small cell lung cancer recurrent
     Dates: start: 20210621, end: 20210621
  14. PACLITAXEL [Suspect]
     Active Substance: PACLITAXEL
     Dates: start: 20210712, end: 20210712
  15. GRANISETRON [Concomitant]
     Active Substance: GRANISETRON
     Indication: Product used for unknown indication
     Dates: start: 20210621, end: 20210712
  16. GRANISETRON [Concomitant]
     Active Substance: GRANISETRON
     Dates: start: 20210712, end: 20210712
  17. GRANISETRON [Concomitant]
     Active Substance: GRANISETRON
  18. DEXAMETHASONE SODIUM PHOSPHATE [Concomitant]
     Active Substance: DEXAMETHASONE SODIUM PHOSPHATE
     Indication: Product used for unknown indication
     Dates: start: 20210621, end: 20210712
  19. DEXAMETHASONE SODIUM PHOSPHATE [Concomitant]
     Active Substance: DEXAMETHASONE SODIUM PHOSPHATE
     Dates: start: 20210712, end: 20210712
  20. DEXAMETHASONE SODIUM PHOSPHATE [Concomitant]
     Active Substance: DEXAMETHASONE SODIUM PHOSPHATE
  21. FAMOTIDINE [Concomitant]
     Active Substance: FAMOTIDINE
     Indication: Product used for unknown indication
     Dates: start: 20210621, end: 20210712
  22. FAMOTIDINE [Concomitant]
     Active Substance: FAMOTIDINE
     Dates: start: 20210712, end: 20210712
  23. FAMOTIDINE [Concomitant]
     Active Substance: FAMOTIDINE
  24. POLARAMINE [Concomitant]
     Active Substance: DEXCHLORPHENIRAMINE MALEATE
     Indication: Product used for unknown indication
     Dates: start: 20210621, end: 20210712
  25. POLARAMINE [Concomitant]
     Active Substance: DEXCHLORPHENIRAMINE MALEATE
     Dates: start: 20210712, end: 20210712
  26. POLARAMINE [Concomitant]
     Active Substance: DEXCHLORPHENIRAMINE MALEATE
  27. DENOSUMAB [Concomitant]
     Active Substance: DENOSUMAB
     Indication: Product used for unknown indication
     Dates: start: 20210712, end: 20211004
  28. DENOSUMAB [Concomitant]
     Active Substance: DENOSUMAB
     Dates: start: 20210823, end: 20210823
  29. DENOSUMAB [Concomitant]
     Active Substance: DENOSUMAB
     Dates: start: 20211004, end: 20211004
  30. METHYLCOBALAMIN [Concomitant]
     Active Substance: METHYLCOBALAMIN
     Indication: Product used for unknown indication
     Route: 048
  31. METHYLCOBALAMIN [Concomitant]
     Active Substance: METHYLCOBALAMIN
     Route: 048
  32. VONOPRAZAN FUMARATE [Concomitant]
     Active Substance: VONOPRAZAN FUMARATE
     Indication: Product used for unknown indication
     Route: 048
  33. VONOPRAZAN FUMARATE [Concomitant]
     Active Substance: VONOPRAZAN FUMARATE
     Route: 048
  34. VONOPRAZAN FUMARATE [Concomitant]
     Active Substance: VONOPRAZAN FUMARATE
  35. LOXOPROFEN SODIUM DIHYDRATE [Concomitant]
     Active Substance: LOXOPROFEN SODIUM DIHYDRATE
     Indication: Product used for unknown indication
     Route: 048
  36. LOXOPROFEN SODIUM DIHYDRATE [Concomitant]
     Active Substance: LOXOPROFEN SODIUM DIHYDRATE
     Route: 048
  37. LOXOPROFEN SODIUM DIHYDRATE [Concomitant]
     Active Substance: LOXOPROFEN SODIUM DIHYDRATE
  38. DESLORATADINE [Concomitant]
     Active Substance: DESLORATADINE
     Indication: Product used for unknown indication
     Route: 048
     Dates: start: 20210702, end: 20210716
  39. DESLORATADINE [Concomitant]
     Active Substance: DESLORATADINE
  40. DESLORATADINE [Concomitant]
     Active Substance: DESLORATADINE
  41. LYRICA [Concomitant]
     Active Substance: PREGABALIN
     Indication: Product used for unknown indication
     Route: 048
     Dates: start: 20210806, end: 20210913
  42. LYRICA [Concomitant]
     Active Substance: PREGABALIN
  43. LYRICA [Concomitant]
     Active Substance: PREGABALIN
  44. PEMETREXED [Concomitant]
     Active Substance: PEMETREXED
     Indication: Non-small cell lung cancer recurrent
     Dates: start: 20211129, end: 20220202
  45. BEVACIZUMAB [Concomitant]
     Active Substance: BEVACIZUMAB
     Indication: Non-small cell lung cancer recurrent
     Dates: start: 20211129, end: 20220202
  46. PEGFILGRASTIM [Concomitant]
     Active Substance: PEGFILGRASTIM
     Indication: Product used for unknown indication
     Dates: start: 20210622, end: 20210622
  47. CYCLOSERINE [Concomitant]
     Active Substance: CYCLOSERINE
     Indication: Product used for unknown indication
     Route: 061
     Dates: start: 20210702, end: 20210716
  48. DIPHENHYDRAMINE [Concomitant]
     Active Substance: DIPHENHYDRAMINE
     Indication: Product used for unknown indication
     Route: 061
     Dates: start: 20210702, end: 20210716
  49. BUDESONIDE\FORMOTEROL\GLYCOPYRRONIUM [Concomitant]
     Active Substance: BUDESONIDE\FORMOTEROL\GLYCOPYRRONIUM
     Indication: Product used for unknown indication
     Route: 055

REACTIONS (4)
  - Hepatic function abnormal [Recovering/Resolving]
  - Off label use [Unknown]
  - Inappropriate schedule of product administration [Unknown]
  - Non-small cell lung cancer [Fatal]

NARRATIVE: CASE EVENT DATE: 20210913
